FAERS Safety Report 9255716 (Version 1)
Quarter: 2013Q2

REPORT INFORMATION
  Report Type: Spontaneous
  Country: DE (occurrence: DE)
  Receive Date: 20130425
  Receipt Date: 20130425
  Transmission Date: 20140414
  Serious: Yes (Other)
  Sender: FDA-Public Use
  Company Number: GXKR2013DE001591

PATIENT
  Sex: Female

DRUGS (1)
  1. RANITIC [Suspect]
     Dosage: UNK MG/ML, UNK

REACTIONS (1)
  - Circulatory collapse [Unknown]
